FAERS Safety Report 4543354-8 (Version None)
Quarter: 2005Q1

REPORT INFORMATION
  Report Type: 
  Country: None (occurrence: None)
  Receive Date: 20050103
  Receipt Date: 20041222
  Transmission Date: 20050727
  Serious: Yes (Hospitalization, Other)
  Sender: FDA-Public Use
  Company Number: FR-BRISTOL-MYERS SQUIBB COMPANY-12805180

PATIENT
  Age: 57 Year
  Sex: Female
  Weight: 47 kg

DRUGS (3)
  1. AMIKLIN POWDER [Suspect]
     Indication: SEPTIC SHOCK
     Dates: start: 20040508, end: 20040510
  2. CLAFORAN [Suspect]
     Indication: SEPTIC SHOCK
     Dates: start: 20040508, end: 20040510
  3. AUGMENTIN '125' [Suspect]
     Indication: SEPTIC SHOCK
     Dosage: 6 GRAMS DAILY FROM 15-MAY TO 18-MAY-2004, THEN DECREASED TO 3 GRAMS DAILY ON 19-MAY TO 23-MAY-2004
     Route: 042
     Dates: start: 20040515, end: 20040518

REACTIONS (10)
  - BLOOD CULTURE POSITIVE [None]
  - CLOSTRIDIUM COLITIS [None]
  - CULTURE URINE POSITIVE [None]
  - ENTEROCOCCAL INFECTION [None]
  - ESCHERICHIA INFECTION [None]
  - HAEMODYNAMIC INSTABILITY [None]
  - KLEBSIELLA INFECTION [None]
  - PATHOGEN RESISTANCE [None]
  - PROTEUS INFECTION [None]
  - PSEUDOMONAS INFECTION [None]
